FAERS Safety Report 9630724 (Version 1)
Quarter: 2013Q4

REPORT INFORMATION
  Report Type: Spontaneous
  Country: US (occurrence: None)
  Receive Date: 20131015
  Receipt Date: 20131015
  Transmission Date: 20140711
  Serious: Yes (Other)
  Sender: FDA-Public Use
  Company Number: TIR-02891

PATIENT
  Age: 54 Year
  Sex: Female
  Weight: 89.81 kg

DRUGS (4)
  1. TIROSINT [Suspect]
     Indication: AUTOIMMUNE THYROIDITIS
     Route: 048
  2. SYNTHROID (LEVOTHYROXINE SODIUM) [Suspect]
     Indication: AUTOIMMUNE THYROIDITIS
     Dosage: VARYING
  3. CYTOMEL (LIOTHYRONINE SODIUM) [Concomitant]
  4. SPIRONOLACTONE [Concomitant]

REACTIONS (10)
  - Thyroid cancer [None]
  - Abdominal distension [None]
  - Abdominal discomfort [None]
  - Palpitations [None]
  - Polycystic ovaries [None]
  - Weight increased [None]
  - Myalgia [None]
  - Fatigue [None]
  - Alopecia [None]
  - Gingival bleeding [None]
